FAERS Safety Report 5012019-0 (Version None)
Quarter: 2006Q2

REPORT INFORMATION
  Report Type: 
  Country: None (occurrence: None)
  Receive Date: 20060524
  Receipt Date: 20060314
  Transmission Date: 20061013
  Serious: Yes (Death)
  Sender: FDA-Public Use
  Company Number: T200600325

PATIENT
  Age: 46 Year

DRUGS (3)
  1. METHADOSE ORAL CONCENTRATE (METHADONE HYDROCHLORIDE)SYRUP, 10MG/ML [Suspect]
  2. HYDROCODONE BITARTRATE/APAP (HYDROCODONE BITARTRATE, ACETAMOPHEN) [Suspect]
     Dosage: ORAL
     Route: 048
  3. DIAZEPAM [Suspect]

REACTIONS (2)
  - INCORRECT DOSE ADMINISTERED [None]
  - INTENTIONAL DRUG MISUSE [None]
